FAERS Safety Report 13574076 (Version 1)
Quarter: 2017Q2

REPORT INFORMATION
  Report Type: Spontaneous
  Country: CN (occurrence: CN)
  Receive Date: 20170523
  Receipt Date: 20170523
  Transmission Date: 20170830
  Serious: Yes (Other)
  Sender: FDA-Public Use
  Company Number: CN-BAYER-2017-090430

PATIENT
  Age: 65 Year
  Sex: Female
  Weight: 63 kg

DRUGS (6)
  1. ROSUVASTATIN CALCIUM. [Concomitant]
     Active Substance: ROSUVASTATIN CALCIUM
     Indication: ARTERIOSCLEROSIS
     Dosage: 10 MG, QD
     Route: 048
     Dates: start: 20170318, end: 20170324
  2. AVELOX [Suspect]
     Active Substance: MOXIFLOXACIN HYDROCHLORIDE
     Indication: CHOLECYSTITIS
     Dosage: 0.4 G, QD
     Route: 041
     Dates: start: 20170312, end: 20170316
  3. ORNIDAZOLE [Concomitant]
     Active Substance: ORNIDAZOLE
     Indication: CHOLECYSTITIS
     Dosage: 100 ML, BID
     Route: 041
     Dates: start: 20170312, end: 20170322
  4. SODIUM CHLORIDE INJECTION [Concomitant]
     Active Substance: SODIUM CHLORIDE
     Indication: INFECTION
     Dosage: 250 ML, QD
     Route: 041
     Dates: start: 20170317, end: 20170321
  5. CLOPIDOGREL BISULFATE. [Concomitant]
     Active Substance: CLOPIDOGREL BISULFATE
     Indication: THROMBOSIS PROPHYLAXIS
     Dosage: 50 MG, QD
     Route: 048
     Dates: start: 20170318, end: 20170324
  6. AVELOX [Suspect]
     Active Substance: MOXIFLOXACIN HYDROCHLORIDE
     Indication: CHOLECYSTITIS
     Dosage: 0.4 G, QD
     Route: 041
     Dates: start: 20170317, end: 20170321

REACTIONS (1)
  - Gout [Recovering/Resolving]

NARRATIVE: CASE EVENT DATE: 20170320
